FAERS Safety Report 6140043-3 (Version None)
Quarter: 2009Q1

REPORT INFORMATION
  Report Type: 
  Country: None (occurrence: None)
  Receive Date: 20090324
  Receipt Date: 20090320
  Transmission Date: 20090719
  Serious: Yes (Other)
  Sender: FDA-Public Use
  Company Number: 224246

PATIENT
  Age: 60 Year
  Sex: Male

DRUGS (2)
  1. METHOTREXATE [Suspect]
     Indication: B-CELL LYMPHOMA
     Dosage: 12.5 MG, TWICE A WEEK, INTRATHECAL
     Route: 037
  2. METHOTREXATE [Suspect]
     Indication: NEOPLASM RECURRENCE
     Dosage: 12.5 MG, TWICE A WEEK, INTRATHECAL
     Route: 037

REACTIONS (3)
  - FEBRILE NEUTROPENIA [None]
  - STOMATITIS [None]
  - THROMBOCYTOPENIA [None]
